FAERS Safety Report 5814139-7 (Version None)
Quarter: 2008Q3

REPORT INFORMATION
  Report Type: 
  Country: None (occurrence: None)
  Receive Date: 20080717
  Receipt Date: 20080707
  Transmission Date: 20090109
  Serious: Yes (Other)
  Sender: FDA-Public Use
  Company Number: US-PFIZER INC-2008057361

PATIENT
  Sex: Female
  Weight: 71.818 kg

DRUGS (16)
  1. REVATIO [Suspect]
     Indication: PULMONARY HYPERTENSION
     Route: 048
  2. CYMBALTA [Concomitant]
     Indication: ANXIETY
  3. CYMBALTA [Concomitant]
     Indication: DEPRESSION
  4. HUMALOG [Concomitant]
  5. METOPROLOL [Concomitant]
  6. SPIRONOLACTONE [Concomitant]
  7. POTASSIUM CHLORIDE [Concomitant]
  8. DILTIAZEM HCL [Concomitant]
  9. METFORMIN HCL [Concomitant]
  10. ADVAIR DISKUS 100/50 [Concomitant]
  11. FUROSEMIDE [Concomitant]
  12. SPIRIVA [Concomitant]
  13. ACTONEL [Concomitant]
  14. COUMADIN [Concomitant]
  15. CALCIUM [Concomitant]
  16. MULTI-VITAMINS [Concomitant]

REACTIONS (2)
  - AMNESIA [None]
  - WEIGHT DECREASED [None]
